FAERS Safety Report 8653244 (Version 4)
Quarter: 2012Q4

REPORT INFORMATION
  Report Type: Report from Study
  Country: US (occurrence: US)
  Receive Date: 20120706
  Receipt Date: 20121001
  Transmission Date: 20130627
  Serious: Yes (Death, Other)
  Sender: FDA-Public Use
  Company Number: US-PFIZER INC-2012158580

PATIENT
  Age: 63 Year
  Sex: Female
  Weight: 57.5 kg

DRUGS (7)
  1. VARENICLINE TARTRATE [Suspect]
     Indication: SMOKING CESSATION THERAPY
     Dosage: 0.5 mg, daily for 3 days
     Route: 048
  2. VARENICLINE TARTRATE [Suspect]
     Dosage: 0.5 mg, 2x/day for 4 days
     Route: 048
  3. VARENICLINE TARTRATE [Suspect]
     Dosage: 1 mg, daily
     Route: 048
  4. NEURONTIN [Suspect]
     Indication: POST HERPETIC NEURALGIA
     Dosage: 600 mg, 1x/day
     Route: 048
  5. SPIRIVA [Concomitant]
     Indication: CHRONIC OBSTRUCTIVE PULMONARY DISEASE
     Dosage: UNK
     Route: 048
  6. PRO-AIR [Concomitant]
     Indication: CHRONIC OBSTRUCTIVE PULMONARY DISEASE
     Dosage: UNK
     Route: 048
  7. SYMBICORT [Concomitant]
     Indication: CHRONIC OBSTRUCTIVE PULMONARY DISEASE
     Dosage: UNK
     Route: 048

REACTIONS (3)
  - Circulatory collapse [Fatal]
  - Hypoxia [Fatal]
  - Chronic obstructive pulmonary disease [Fatal]
